FAERS Safety Report 19745012 (Version 2)
Quarter: 2021Q3

REPORT INFORMATION
  Report Type: Spontaneous
  Country: US (occurrence: US)
  Receive Date: 20210825
  Receipt Date: 20210830
  Transmission Date: 20211014
  Serious: No
  Sender: FDA-Public Use
  Company Number: US-SA-2021SA279989

PATIENT
  Age: 74 Year
  Sex: Female

DRUGS (1)
  1. LANTUS SOLOSTAR [Suspect]
     Active Substance: INSULIN GLARGINE
     Indication: DIABETES MELLITUS
     Dosage: 20 IU, QD
     Route: 065

REACTIONS (2)
  - Blood glucose decreased [Unknown]
  - Device issue [Unknown]

NARRATIVE: CASE EVENT DATE: 202108
